FAERS Safety Report 4351275-9 (Version None)
Quarter: 2004Q2

REPORT INFORMATION
  Report Type: 
  Country: None (occurrence: None)
  Receive Date: 20040428
  Receipt Date: 20040413
  Transmission Date: 20050107
  Serious: Yes (Death, Hospitalization)
  Sender: FDA-Public Use
  Company Number: USA040362795

PATIENT
  Age: 18 Year
  Sex: Male
  Weight: 100 kg

DRUGS (9)
  1. XIGRIS [Suspect]
     Indication: MENINGITIS MENINGOCOCCAL
     Dosage: 24 UG/KG/HR/96 HOUR INFUSION
     Dates: start: 20040125, end: 20040128
  2. ROCEPHIN [Concomitant]
  3. DIPRIVAN [Concomitant]
  4. PANTOPRAZOLE SODIUM [Concomitant]
  5. NOREPINEPHRINE BITARTRATE [Concomitant]
  6. TPN [Concomitant]
  7. LANOXIN [Concomitant]
  8. DILANTIN [Concomitant]
  9. DECADRON [Concomitant]

REACTIONS (12)
  - ACTIVATED PARTIAL THROMBOPLASTIN TIME PROLONGED [None]
  - ATRIAL FIBRILLATION [None]
  - CARDIAC FAILURE [None]
  - CEREBRAL INFARCTION [None]
  - DISSEMINATED INTRAVASCULAR COAGULATION [None]
  - EJECTION FRACTION DECREASED [None]
  - INTERNATIONAL NORMALISED RATIO DECREASED [None]
  - INTRAVENTRICULAR HAEMORRHAGE [None]
  - PROTHROMBIN TIME PROLONGED [None]
  - SEPTIC SHOCK [None]
  - VENTRICULAR DYSFUNCTION [None]
  - WATERHOUSE-FRIDERICHSEN SYNDROME [None]
